FAERS Safety Report 17567620 (Version 1)
Quarter: 2020Q1

REPORT INFORMATION
  Report Type: Spontaneous
  Country: CA (occurrence: CA)
  Receive Date: 20200320
  Receipt Date: 20200320
  Transmission Date: 20200409
  Serious: Yes (Death)
  Sender: FDA-Public Use
  Company Number: NVSC2020CA078017

PATIENT
  Age: 72 Year
  Sex: Female

DRUGS (10)
  1. SANDOSTATIN LAR DEPOT [Suspect]
     Active Substance: OCTREOTIDE ACETATE
     Indication: CARCINOID TUMOUR
     Dosage: 50 MG
     Route: 030
  2. ISOPHANE INSULIN [Concomitant]
     Active Substance: INSULIN NOS
     Indication: PRODUCT USED FOR UNKNOWN INDICATION
     Dosage: UNK
     Route: 065
  3. SANDOSTATIN [Suspect]
     Active Substance: OCTREOTIDE ACETATE
     Indication: CARCINOID TUMOUR
     Dosage: 3 DF, QD
     Route: 058
  4. CORTATE [Concomitant]
     Active Substance: HYDROCORTISONE
     Indication: PRODUCT USED FOR UNKNOWN INDICATION
     Dosage: 2 DF, QD (2 EVERY 1 DAYS)
     Route: 061
  5. LYRICA [Concomitant]
     Active Substance: PREGABALIN
     Indication: PRODUCT USED FOR UNKNOWN INDICATION
     Dosage: 25 MG, BID (2 EVERY 1 DAY).
     Route: 048
  6. MORPHINE [Suspect]
     Active Substance: MORPHINE
     Indication: PRODUCT USED FOR UNKNOWN INDICATION
     Dosage: UNK
     Route: 065
  7. CORTATE [Concomitant]
     Active Substance: HYDROCORTISONE
     Dosage: UNK (EVERY 1 DAYS)
     Route: 061
  8. FRAGMIN [Concomitant]
     Active Substance: DALTEPARIN SODIUM
     Indication: PRODUCT USED FOR UNKNOWN INDICATION
     Dosage: UNK (SOLUTION FOR INTRAVENOUS).
     Route: 048
  9. LYRICA [Concomitant]
     Active Substance: PREGABALIN
     Dosage: 75 MG
     Route: 065
  10. INSULIN [Concomitant]
     Active Substance: INSULIN NOS
     Indication: PRODUCT USED FOR UNKNOWN INDICATION
     Dosage: 3 DF, QD (3 EVERY 1 DAYS)
     Route: 065

REACTIONS (3)
  - General physical health deterioration [Fatal]
  - Jaundice [Fatal]
  - Inappropriate schedule of product administration [Fatal]
